FAERS Safety Report 24675552 (Version 1)
Quarter: 2024Q4

REPORT INFORMATION
  Report Type: Spontaneous
  Country: DK (occurrence: DK)
  Receive Date: 20241128
  Receipt Date: 20241128
  Transmission Date: 20250115
  Serious: Yes (Hospitalization)
  Sender: PFIZER
  Company Number: None

PATIENT
  Age: 92 Year
  Sex: Female
  Weight: 60 kg

DRUGS (15)
  1. PIPERACILLIN SODIUM\TAZOBACTAM SODIUM [Suspect]
     Active Substance: PIPERACILLIN SODIUM\TAZOBACTAM SODIUM
     Indication: Infection
     Dosage: 4 G, 3X/DAY (8H)
     Route: 042
     Dates: start: 20240718, end: 20240724
  2. PANTOPRAZOLE SODIUM [Concomitant]
     Active Substance: PANTOPRAZOLE SODIUM
     Indication: Gastric ulcer
     Dosage: 40 MG, 1X/DAY
     Dates: start: 20230126
  3. BISACODYL [Concomitant]
     Active Substance: BISACODYL
     Indication: Constipation
     Dosage: 5 MG, 1X/DAY
     Dates: start: 20231123
  4. LACTULOSE [Concomitant]
     Active Substance: LACTULOSE
     Indication: Constipation
     Dosage: 15 ML, 1X/DAY
     Dates: start: 20231121
  5. POTASSIUM CHLORIDE [Concomitant]
     Active Substance: POTASSIUM CHLORIDE
     Dosage: 750 MG, 1X/DAY
     Dates: start: 20230309
  6. ELIQUIS [Concomitant]
     Active Substance: APIXABAN
     Dosage: 2.5 MG, 2X/DAY
     Dates: start: 2022
  7. FOLIC ACID [Concomitant]
     Active Substance: FOLIC ACID
     Dosage: 10 MG, WEEKLY
     Dates: start: 2013
  8. FUROSEMIDE [Concomitant]
     Active Substance: FUROSEMIDE
     Dosage: FREQ:.5 D;
     Dates: start: 20230315
  9. PREDNISOLONE [Concomitant]
     Active Substance: PREDNISOLONE
     Dosage: 2.5 MG, 1X/DAY
     Dates: start: 20240527, end: 20240727
  10. METHOTREXATE [Concomitant]
     Active Substance: METHOTREXATE
     Dosage: 75 MG, WEEKLY
     Dates: start: 20230123
  11. COLCHICINE [Concomitant]
     Active Substance: COLCHICINE
     Dosage: 500 MG, ALTERNATE DAY
     Dates: start: 20240619
  12. ALENDRONIC ACID [Concomitant]
     Active Substance: ALENDRONIC ACID
     Dosage: 70 MG, WEEKLY
     Dates: start: 20240212
  13. ACETAMINOPHEN [Concomitant]
     Active Substance: ACETAMINOPHEN
     Dosage: 1 G, 4X/DAY
     Dates: start: 2016
  14. OLODATEROL HYDROCHLORIDE\TIOTROPIUM BROMIDE MONOHYDRATE [Concomitant]
     Active Substance: OLODATEROL HYDROCHLORIDE\TIOTROPIUM BROMIDE MONOHYDRATE
     Dosage: 2 DF, 1X/DAY
     Route: 055
     Dates: start: 2021
  15. OLOPATADINE [OLOPATADINE HYDROCHLORIDE] [Concomitant]
     Dosage: 2 DROP, 2X/DAY
     Route: 031
     Dates: start: 2021

REACTIONS (5)
  - Pyelonephritis [Unknown]
  - Oral mucosal blistering [Unknown]
  - Tongue haematoma [Unknown]
  - Pruritus [Unknown]
  - Lip pain [Unknown]

NARRATIVE: CASE EVENT DATE: 20240718
